FAERS Safety Report 10590340 (Version 2)
Quarter: 2014Q4

REPORT INFORMATION
  Report Type: Spontaneous
  Country: JP (occurrence: JP)
  Receive Date: 20141118
  Receipt Date: 20141202
  Transmission Date: 20150529
  Serious: Yes (Hospitalization)
  Sender: FDA-Public Use
  Company Number: JP-MYLANLABS-2014M1009866

PATIENT

DRUGS (1)
  1. BICALUTAMIDE TABLETS 80MG  ^MYLAN^ [Suspect]
     Active Substance: BICALUTAMIDE
     Indication: PROSTATE CANCER
     Route: 048

REACTIONS (1)
  - Immune thrombocytopenic purpura [Recovering/Resolving]
